FAERS Safety Report 5062424-1 (Version None)
Quarter: 2006Q3

REPORT INFORMATION
  Report Type: 
  Country: None (occurrence: None)
  Receive Date: 20060721
  Receipt Date: 20060705
  Transmission Date: 20061208
  Serious: Yes (Other)
  Sender: FDA-Public Use
  Company Number: EMR64300002-34

PATIENT
  Age: 64 Year
  Sex: Male

DRUGS (3)
  1. NIASPAN [Suspect]
     Indication: DYSLIPIDAEMIA
     Dosage: 375 MG QD PO
     Route: 048
     Dates: start: 20051122, end: 20051215
  2. ACETYLSALICYLIC ACID SRT [Concomitant]
  3. ROSUVASTATIN [Concomitant]

REACTIONS (1)
  - FLUSHING [None]
